FAERS Safety Report 15033581 (Version 1)
Quarter: 2018Q2

REPORT INFORMATION
  Report Type: Spontaneous
  Country: US (occurrence: US)
  Receive Date: 20180619
  Receipt Date: 20180619
  Transmission Date: 20180711
  Serious: No
  Sender: FDA-Public Use
  Company Number: US-AMGEN-USASP2011005264

PATIENT
  Age: 20 Year
  Sex: Female
  Weight: 56.7 kg

DRUGS (3)
  1. NEUPOGEN [Suspect]
     Active Substance: FILGRASTIM
     Indication: NEUTROPENIA
     Dosage: 90 ?G, QD
     Dates: start: 201008, end: 20110104
  2. NEUPOGEN [Suspect]
     Active Substance: FILGRASTIM
     Dosage: 60 ?G, UNK
     Dates: start: 20110112, end: 20110127
  3. CONTRACEPTIVE HD [Concomitant]

REACTIONS (2)
  - Weight decreased [Recovering/Resolving]
  - Alopecia [Not Recovered/Not Resolved]

NARRATIVE: CASE EVENT DATE: 201012
